FAERS Safety Report 10372575 (Version 2)
Quarter: 2014Q3

REPORT INFORMATION
  Report Type: Spontaneous
  Country: US (occurrence: US)
  Receive Date: 20140808
  Receipt Date: 20140808
  Transmission Date: 20150326
  Serious: No
  Sender: FDA-Public Use
  Company Number: US-BRISTOL-MYERS SQUIBB COMPANY-19196203

PATIENT
  Age: 38 Year
  Sex: Female

DRUGS (1)
  1. SPRYCEL [Suspect]
     Active Substance: DASATINIB
     Indication: CHRONIC MYELOID LEUKAEMIA
     Dosage: 23-MAY-2013
     Route: 048
     Dates: start: 201208

REACTIONS (4)
  - Arthralgia [Unknown]
  - Anaemia [Unknown]
  - Drug dose omission [Unknown]
  - Headache [Unknown]
